FAERS Safety Report 4693111-7 (Version None)
Quarter: 2005Q2

REPORT INFORMATION
  Report Type: 
  Country: None (occurrence: None)
  Receive Date: 20050128
  Receipt Date: 20050128
  Transmission Date: 20051028
  Serious: Yes (Other)
  Sender: FDA-Public Use
  Company Number: None

PATIENT
  Age: 24 Year
  Sex: Female
  Weight: 90.7194 kg

DRUGS (1)
  1. HYDROCODONE [Suspect]
     Indication: MIGRAINE
     Dosage: 5/500 ONE PRN HEADACHE
     Dates: start: 20030601

REACTIONS (2)
  - NAUSEA [None]
  - THERAPEUTIC PRODUCT INEFFECTIVE [None]
